FAERS Safety Report 13005849 (Version 5)
Quarter: 2017Q3

REPORT INFORMATION
  Report Type: Report from Study
  Country: DE (occurrence: DE)
  Receive Date: 20161207
  Receipt Date: 20170908
  Transmission Date: 20171127
  Serious: Yes (Hospitalization, Other)
  Sender: FDA-Public Use
  Company Number: DE-INCYTE CORPORATION-2016IN007752

PATIENT

DRUGS (16)
  1. BIFITERAL [Concomitant]
     Active Substance: LACTULOSE
     Indication: PRODUCT USED FOR UNKNOWN INDICATION
     Dosage: 15 ML, UNK
     Route: 048
     Dates: start: 20160930
  2. XARELTO [Concomitant]
     Active Substance: RIVAROXABAN
     Indication: CORONARY ARTERY DISEASE
     Dosage: 20 MG, UNK
     Route: 048
     Dates: start: 20160414
  3. SIMVASTATIN. [Concomitant]
     Active Substance: SIMVASTATIN
     Indication: BLOOD CHOLESTEROL INCREASED
     Dosage: 30 MG, UNK
     Route: 048
     Dates: start: 20140306
  4. OXYCODON [Concomitant]
     Active Substance: OXYCODONE
     Indication: PRODUCT USED FOR UNKNOWN INDICATION
     Dosage: 30 MG, UNK
     Route: 065
  5. PREDNISOLONE. [Concomitant]
     Active Substance: PREDNISOLONE
     Indication: SKIN ULCER
     Dosage: 4 MG, UNK
     Route: 048
     Dates: start: 20140306
  6. JAKAVI [Suspect]
     Active Substance: RUXOLITINIB
     Indication: JANUS KINASE 2 MUTATION
  7. JAKAVI [Suspect]
     Active Substance: RUXOLITINIB
     Indication: JANUS KINASE 2 MUTATION
  8. RAMILICH [Concomitant]
     Active Substance: RAMIPRIL
     Indication: HYPERTENSION
     Dosage: 10 MG, UNK
     Route: 048
     Dates: start: 20140306
  9. BISOPROLOL [Concomitant]
     Active Substance: BISOPROLOL
     Indication: HYPERTENSION
     Dosage: 5 MG, UNK
     Route: 048
     Dates: start: 20140306
  10. TAMSULOSIN [Concomitant]
     Active Substance: TAMSULOSIN
     Dosage: 0.4 MG, UNK
     Route: 048
     Dates: start: 20150115
  11. JAKAVI [Suspect]
     Active Substance: RUXOLITINIB
     Indication: POLYCYTHAEMIA VERA
     Dosage: 20 MG, BID
     Route: 048
     Dates: start: 20160126
  12. TAMSULOSIN [Concomitant]
     Active Substance: TAMSULOSIN
     Indication: BENIGN PROSTATIC HYPERPLASIA
     Dosage: 0.4 MG, UNK
     Route: 048
     Dates: start: 20150115
  13. NOVAMINSULFON [Concomitant]
     Active Substance: METAMIZOLE
     Indication: PAIN
     Dosage: 1000 MG, UNK
     Route: 058
     Dates: start: 20160930
  14. ASPIRIN. [Concomitant]
     Active Substance: ASPIRIN
     Indication: CORONARY ARTERY DISEASE
     Dosage: 100 OT, UNK
     Route: 048
     Dates: start: 20120828
  15. TORASEMID [Concomitant]
     Active Substance: TORSEMIDE
     Indication: POLYURIA
     Dosage: 10 MG, UNK
     Route: 048
     Dates: start: 20140306
  16. PANTOPRAZOL [Concomitant]
     Active Substance: PANTOPRAZOLE SODIUM
     Indication: GASTROINTESTINAL DISORDER
     Dosage: 40 MG, UNK
     Route: 048
     Dates: start: 20160930

REACTIONS (8)
  - Pyoderma gangrenosum [Recovered/Resolved]
  - Cardiomyopathy [Unknown]
  - Skin ulcer [Not Recovered/Not Resolved]
  - Cardiomegaly [Unknown]
  - Cardiac failure congestive [Recovered/Resolved]
  - Tricuspid valve sclerosis [Unknown]
  - Aortic arteriosclerosis [Unknown]
  - Gout [Not Recovered/Not Resolved]

NARRATIVE: CASE EVENT DATE: 20160714
